FAERS Safety Report 23986777 (Version 1)
Quarter: 2024Q2

REPORT INFORMATION
  Report Type: Spontaneous
  Country: US (occurrence: None)
  Receive Date: 20240617
  Receipt Date: 20240617
  Transmission Date: 20240716
  Serious: Yes (Hospitalization, Other)
  Sender: FDA-Public Use
  Company Number: None

PATIENT
  Age: 9 Week
  Sex: Male
  Weight: 11.7 kg

DRUGS (1)
  1. ARTESUNATE [Suspect]
     Active Substance: ARTESUNATE
     Indication: Malaria
     Dates: start: 20230605, end: 20240608

REACTIONS (1)
  - Anaemia [None]

NARRATIVE: CASE EVENT DATE: 20230614
